FAERS Safety Report 16819002 (Version 1)
Quarter: 2019Q3

REPORT INFORMATION
  Report Type: Spontaneous
  Country: BR (occurrence: BR)
  Receive Date: 20190917
  Receipt Date: 20190917
  Transmission Date: 20191005
  Serious: Yes (Hospitalization)
  Sender: FDA-Public Use
  Company Number: BR-ABBVIE-19P-020-2926402-00

PATIENT
  Sex: Male
  Weight: 19 kg

DRUGS (7)
  1. ENSURE [Suspect]
     Active Substance: AMINO ACIDS\DEXTROSE\ELECTROLYTES NOS\SOYBEAN OIL\VITAMINS
     Indication: FEEDING DISORDER
     Dosage: LIQUID, 4 PACKS OF 200 ML PER DAY; ENSURE PLUS CHOCOLATE (NUTRITIONAL SUPPLEMENT)
     Route: 048
  2. AQUADEKS [Concomitant]
     Active Substance: MINERALS\VITAMINS
     Indication: WEIGHT DECREASED
     Dosage: START DATE: MORE THAN 1 YEAR AGO; TABLET OR LIQUID
     Route: 048
     Dates: start: 2018
  3. CREON [Suspect]
     Active Substance: PANCRELIPASE AMYLASE\PANCRELIPASE LIPASE\PANCRELIPASE PROTEASE
     Indication: PANCREATIC FAILURE
     Dosage: START DATE: SINCE FIFTEENTH DAY OF LIFE; TAKEN APART FROM EACH MEAL
     Route: 048
     Dates: start: 2015
  4. ENSURE [Suspect]
     Active Substance: AMINO ACIDS\DEXTROSE\ELECTROLYTES NOS\SOYBEAN OIL\VITAMINS
     Dosage: ENSURE PLUS VANILLA
     Route: 048
  5. AQUADEKS [Concomitant]
     Active Substance: MINERALS\VITAMINS
     Indication: MALABSORPTION
  6. PULMOZYME [Concomitant]
     Active Substance: DORNASE ALFA
     Indication: SECRETION DISCHARGE
     Dosage: START DATE: SINCE 3 MONTHS OLD, DROPS
     Route: 055
  7. CLENIL A [Concomitant]
     Active Substance: BECLOMETHASONE DIPROPIONATE
     Indication: PNEUMONITIS
     Route: 048
     Dates: start: 201906

REACTIONS (7)
  - Growth retardation [Unknown]
  - Cibophobia [Unknown]
  - Vomiting [Unknown]
  - Dehydration [Recovered/Resolved]
  - Ataxia [Unknown]
  - Weight fluctuation [Unknown]
  - Erosive oesophagitis [Unknown]

NARRATIVE: CASE EVENT DATE: 2018
